FAERS Safety Report 12801930 (Version 1)
Quarter: 2016Q3

REPORT INFORMATION
  Report Type: Spontaneous
  Country: US (occurrence: US)
  Receive Date: 20160930
  Receipt Date: 20160930
  Transmission Date: 20161109
  Serious: Yes (Other)
  Sender: FDA-Public Use
  Company Number: None

PATIENT

DRUGS (3)
  1. LIDOCAINE HCL INJ. USP HOSPIRA [Suspect]
     Active Substance: LIDOCAINE HYDROCHLORIDE
     Indication: EYE OPERATION
     Dosage: ?          OTHER FREQUENCY:ONE TIME;?
     Route: 056
     Dates: start: 20160810, end: 20160810
  2. LIDOCAINE HCL INJ. USP APP FRESENIUS KABI [Suspect]
     Active Substance: LIDOCAINE HYDROCHLORIDE
     Indication: EYE OPERATION
     Dosage: ?          OTHER FREQUENCY:ONE TIME;?
     Route: 056
     Dates: start: 20160810, end: 20160810
  3. LIDOCAINE. [Concomitant]
     Active Substance: LIDOCAINE

REACTIONS (2)
  - Ocular discomfort [None]
  - Drug effect decreased [None]

NARRATIVE: CASE EVENT DATE: 20160810
